FAERS Safety Report 6428060-7 (Version None)
Quarter: 2009Q4

REPORT INFORMATION
  Report Type: 
  Country: None (occurrence: None)
  Receive Date: 20091104
  Receipt Date: 20091104
  Transmission Date: 20100525
  Serious: Yes (Hospitalization)
  Sender: FDA-Public Use
  Company Number: None

PATIENT
  Age: 45 Year

DRUGS (2)
  1. CLONAZEPAM [Suspect]
     Indication: PSYCHOTIC DISORDER
     Dates: start: 20070710, end: 20090714
  2. RISPERIDONE [Suspect]
     Indication: PSYCHOTIC DISORDER
     Dosage: 1 MG BID PO
     Route: 048
     Dates: start: 20090806

REACTIONS (4)
  - APHASIA [None]
  - DISEASE PROGRESSION [None]
  - HEADACHE [None]
  - PHOTOPHOBIA [None]
